FAERS Safety Report 6469724-9 (Version None)
Quarter: 2009Q4

REPORT INFORMATION
  Report Type: 
  Country: None (occurrence: None)
  Receive Date: 20091119
  Receipt Date: 20090728
  Transmission Date: 20100525
  Serious: Yes (Hospitalization, Other)
  Sender: FDA-Public Use
  Company Number: WAES 0907USA05057

PATIENT
  Sex: 0

DRUGS (1)
  1. JANUVIA [Suspect]
     Dosage: PO
     Route: 048

REACTIONS (2)
  - ADVERSE EVENT [None]
  - PANCREATITIS [None]
